FAERS Safety Report 16429640 (Version 4)
Quarter: 2021Q4

REPORT INFORMATION
  Report Type: Spontaneous
  Country: GB (occurrence: GB)
  Receive Date: 20190614
  Receipt Date: 20211122
  Transmission Date: 20220304
  Serious: Yes (Other)
  Sender: FDA-Public Use
  Company Number: GB-GLAXOSMITHKLINE-GB2019EME100777

PATIENT
  Sex: Female

DRUGS (11)
  1. PAXIL [Interacting]
     Active Substance: PAROXETINE HYDROCHLORIDE
     Indication: Product used for unknown indication
     Dosage: 20 MILLIGRAM
     Route: 065
     Dates: start: 200812
  2. PAXIL [Interacting]
     Active Substance: PAROXETINE HYDROCHLORIDE
     Dosage: 30 MILLIGRAM
     Route: 065
  3. PAXIL [Interacting]
     Active Substance: PAROXETINE HYDROCHLORIDE
     Dosage: 40 MILLIGRAM
     Route: 065
     Dates: start: 2009, end: 2010
  4. PAXIL [Interacting]
     Active Substance: PAROXETINE HYDROCHLORIDE
     Dosage: 50 MILLIGRAM
     Route: 065
  5. PAXIL [Interacting]
     Active Substance: PAROXETINE HYDROCHLORIDE
     Dosage: 60 MILLIGRAM
     Route: 065
     Dates: start: 2016, end: 201904
  6. TOPIRAMATE [Suspect]
     Active Substance: TOPIRAMATE
     Indication: Product used for unknown indication
     Dosage: UNK
     Route: 065
  7. TOPIRAMATE [Suspect]
     Active Substance: TOPIRAMATE
     Dosage: 50 MILLIGRAM
     Route: 065
     Dates: start: 200903
  8. TOPIRAMATE [Suspect]
     Active Substance: TOPIRAMATE
     Dosage: 100 MILLIGRAM
     Route: 065
     Dates: start: 2012
  9. PROTOPIC [Suspect]
     Active Substance: TACROLIMUS
     Indication: Product used for unknown indication
     Dosage: UNK
     Route: 065
  10. RITONAVIR [Interacting]
     Active Substance: RITONAVIR
     Indication: Product used for unknown indication
     Dosage: UNK
     Route: 065
  11. PSORALEN [Suspect]
     Active Substance: PSORALEN
     Indication: Product used for unknown indication
     Dosage: UNK
     Route: 065

REACTIONS (37)
  - Psoriatic arthropathy [Unknown]
  - Memory impairment [Unknown]
  - Skin disorder [Unknown]
  - Dermatitis [Unknown]
  - Psoriasis [Unknown]
  - Arthropathy [Unknown]
  - Grip strength decreased [Unknown]
  - Clumsiness [Unknown]
  - Loss of personal independence in daily activities [Unknown]
  - Cognitive disorder [Unknown]
  - Disturbance in social behaviour [Unknown]
  - Feeling abnormal [Not Recovered/Not Resolved]
  - Rash [Not Recovered/Not Resolved]
  - Peripheral swelling [Unknown]
  - Depression [Unknown]
  - Skin hypertrophy [Unknown]
  - Pruritus [Not Recovered/Not Resolved]
  - Musculoskeletal stiffness [Unknown]
  - Formication [Unknown]
  - Skin exfoliation [Unknown]
  - Scratch [Unknown]
  - Pain in extremity [Unknown]
  - Limb discomfort [Unknown]
  - Fatigue [Unknown]
  - Influenza like illness [Unknown]
  - Skin burning sensation [Unknown]
  - Eye irritation [Unknown]
  - Patient isolation [Unknown]
  - Neurodermatitis [Unknown]
  - Skin discolouration [Unknown]
  - Anxiety [Unknown]
  - Agoraphobia [Unknown]
  - Rash papular [Unknown]
  - Sleep disorder [Unknown]
  - Drug interaction [Unknown]
  - Incorrect dose administered [Unknown]
  - Hypertension [Unknown]

NARRATIVE: CASE EVENT DATE: 20100101
